FAERS Safety Report 7384082-3 (Version None)
Quarter: 2011Q1

REPORT INFORMATION
  Report Type: 
  Country: None (occurrence: None)
  Receive Date: 20110322
  Receipt Date: 20110310
  Transmission Date: 20110831
  Serious: Yes (Hospitalization)
  Sender: FDA-Public Use
  Company Number: 2011SP000801

PATIENT
  Age: 65 Year
  Sex: Female

DRUGS (1)
  1. LATUDA [Suspect]
     Dosage: 40 MG, QD, ORAL
     Route: 048
     Dates: start: 20110308

REACTIONS (2)
  - PNEUMONIA [None]
  - GAIT DISTURBANCE [None]
